FAERS Safety Report 4984609-2 (Version None)
Quarter: 2006Q2

REPORT INFORMATION
  Report Type: 
  Country: None (occurrence: None)
  Receive Date: 20060427
  Receipt Date: 20050404
  Transmission Date: 20061013
  Serious: Yes (Hospitalization)
  Sender: FDA-Public Use
  Company Number: NO-MERCK-0504NOR00011

PATIENT
  Age: 55 Year
  Sex: Male

DRUGS (25)
  1. VIOXX [Suspect]
     Indication: OSTEOARTHRITIS
     Route: 048
     Dates: start: 20001208, end: 20001214
  2. VIOXX [Suspect]
     Route: 048
     Dates: start: 20010205, end: 20010211
  3. VIOXX [Suspect]
     Route: 048
     Dates: start: 20010410, end: 20010416
  4. VIOXX [Suspect]
     Route: 048
     Dates: start: 20020923, end: 20020929
  5. VIOXX [Suspect]
     Route: 048
     Dates: start: 20030224, end: 20030325
  6. VIOXX [Suspect]
     Route: 048
     Dates: start: 20030926, end: 20031025
  7. VIOXX [Suspect]
     Route: 048
     Dates: start: 20040119, end: 20040217
  8. VIOXX [Suspect]
     Indication: ANKLE FRACTURE
     Route: 048
     Dates: start: 20001208, end: 20001214
  9. VIOXX [Suspect]
     Route: 048
     Dates: start: 20010205, end: 20010211
  10. VIOXX [Suspect]
     Route: 048
     Dates: start: 20010410, end: 20010416
  11. VIOXX [Suspect]
     Route: 048
     Dates: start: 20020923, end: 20020929
  12. VIOXX [Suspect]
     Route: 048
     Dates: start: 20030224, end: 20030325
  13. VIOXX [Suspect]
     Route: 048
     Dates: start: 20030926, end: 20031025
  14. VIOXX [Suspect]
     Route: 048
     Dates: start: 20040119, end: 20040217
  15. MODURETIC 5-50 [Suspect]
     Indication: HYPERTENSION
     Route: 048
     Dates: start: 20030224, end: 20030301
  16. ATORVASTATIN CALCIUM [Concomitant]
     Route: 065
     Dates: start: 20031101
  17. ATENOLOL [Concomitant]
     Route: 065
     Dates: start: 20031101
  18. AMLODIPINE BESYLATE [Concomitant]
     Indication: HYPERTENSION
     Route: 048
     Dates: start: 20030101, end: 20030101
  19. AMLODIPINE BESYLATE [Concomitant]
     Route: 048
     Dates: start: 20031001
  20. ASPIRIN AND MAGNESIUM OXIDE [Concomitant]
     Route: 065
     Dates: start: 20031101
  21. DICLOFENAC SODIUM [Concomitant]
     Indication: PAIN
     Route: 065
  22. ACETAMINOPHEN AND CODEINE PHOSPHATE [Concomitant]
     Indication: PAIN
     Route: 065
  23. ACETAMINOPHEN [Concomitant]
     Indication: PAIN
     Route: 065
  24. ISOSORBIDE MONONITRATE [Concomitant]
     Route: 065
     Dates: start: 20030101
  25. METOPROLOL TARTRATE [Concomitant]
     Indication: HYPERTENSION
     Route: 065
     Dates: start: 20030101

REACTIONS (12)
  - ANGINA PECTORIS [None]
  - BLOOD CHOLESTEROL INCREASED [None]
  - DIZZINESS [None]
  - HEADACHE [None]
  - HYPERTENSION [None]
  - MYOCARDIAL INFARCTION [None]
  - NAUSEA [None]
  - PAIN [None]
  - PALPITATIONS [None]
  - RASH [None]
  - STOMACH DISCOMFORT [None]
  - SURGERY [None]
